FAERS Safety Report 8496083-2 (Version None)
Quarter: 2012Q3

REPORT INFORMATION
  Report Type: 
  Country: None (occurrence: None)
  Receive Date: 20120709
  Receipt Date: 20120626
  Transmission Date: 20120928
  Serious: No
  Sender: FDA-Public Use
  Company Number: BR-JNJFOC-20120614311

PATIENT
  Age: 77 Year
  Sex: Female
  Weight: 80 kg

DRUGS (3)
  1. XELODA [Concomitant]
     Indication: CHEMOTHERAPY
     Route: 048
  2. ANALGESIC NOS [Suspect]
     Indication: PAIN
     Route: 065
  3. DURAGESIC-100 [Suspect]
     Indication: CANCER PAIN
     Route: 062

REACTIONS (6)
  - CONSTIPATION [None]
  - GASTROINTESTINAL PAIN [None]
  - VULVOVAGINAL PAIN [None]
  - DRUG INEFFECTIVE [None]
  - INAPPROPRIATE SCHEDULE OF DRUG ADMINISTRATION [None]
  - PRODUCT QUALITY ISSUE [None]
